FAERS Safety Report 24566679 (Version 1)
Quarter: 2024Q4

REPORT INFORMATION
  Report Type: Spontaneous
  Country: US (occurrence: US)
  Receive Date: 20241030
  Receipt Date: 20241030
  Transmission Date: 20250115
  Serious: Yes (Other)
  Sender: TARO
  Company Number: US-TARO PHARMACEUTICALS USA INC.-2024TAR02066

PATIENT

DRUGS (2)
  1. ACETAZOLAMIDE [Suspect]
     Active Substance: ACETAZOLAMIDE
     Indication: Hypobarism
     Dosage: 250 MG, TWICE DAILY STARTING 2 DAYS BEFORE HIS HIKE
     Route: 065
  2. omelsartan [Concomitant]
     Indication: Hypertension
     Dosage: UNK
     Route: 065

REACTIONS (2)
  - Acute kidney injury [Unknown]
  - Rhabdomyolysis [Unknown]
